FAERS Safety Report 4400715-5 (Version None)
Quarter: 2004Q3

REPORT INFORMATION
  Report Type: 
  Country: None (occurrence: None)
  Receive Date: 20040719
  Receipt Date: 20040714
  Transmission Date: 20050211
  Serious: Yes (Death, Other)
  Sender: FDA-Public Use
  Company Number: PHBS2004JP09439

PATIENT
  Age: 59 Year
  Sex: Female

DRUGS (1)
  1. CYCLOSPORINE [Suspect]
     Indication: BONE MARROW TRANSPLANT
     Route: 048

REACTIONS (9)
  - BLINDNESS TRANSIENT [None]
  - CONVULSION [None]
  - DISORIENTATION [None]
  - ENCEPHALOPATHY [None]
  - GRAFT VERSUS HOST DISEASE [None]
  - HEMIPARESIS [None]
  - HEPATIC FAILURE [None]
  - HYPERTENSION [None]
  - SUBARACHNOID HAEMORRHAGE [None]
